FAERS Safety Report 6076459-3 (Version None)
Quarter: 2009Q1

REPORT INFORMATION
  Report Type: 
  Country: None (occurrence: None)
  Receive Date: 20090213
  Receipt Date: 20090209
  Transmission Date: 20090719
  Serious: Yes (Hospitalization)
  Sender: FDA-Public Use
  Company Number: ES-JNJFOC-20090202387

PATIENT
  Age: 61 Year
  Sex: Male

DRUGS (4)
  1. TAVANIC [Suspect]
     Indication: SEPSIS
     Route: 042
  2. TRANGOREX [Interacting]
     Indication: ATRIAL FIBRILLATION
     Route: 042
  3. NOREPINEPHRINE [Concomitant]
     Route: 042
  4. CEFTRIAXONA [Concomitant]
     Indication: SEPSIS
     Route: 042

REACTIONS (3)
  - BRADYCARDIA [None]
  - DRUG INTERACTION [None]
  - TORSADE DE POINTES [None]
